FAERS Safety Report 11860693 (Version 1)
Quarter: 2015Q4

REPORT INFORMATION
  Report Type: Spontaneous
  Country: US (occurrence: US)
  Receive Date: 20151222
  Receipt Date: 20151222
  Transmission Date: 20160305
  Serious: Yes (Hospitalization, Other)
  Sender: FDA-Public Use
  Company Number: US-GILEAD-2015-0188626

PATIENT
  Age: 56 Year
  Sex: Male

DRUGS (1)
  1. ZYDELIG [Suspect]
     Active Substance: IDELALISIB
     Indication: NON-HODGKIN^S LYMPHOMA
     Dosage: UNK
     Route: 065
     Dates: start: 201507

REACTIONS (15)
  - Dyspnoea [Unknown]
  - Abdominal distension [Unknown]
  - Ascites [Unknown]
  - Feeling jittery [Unknown]
  - Cold sweat [Unknown]
  - Tremor [Unknown]
  - Incoherent [Unknown]
  - Pyrexia [Not Recovered/Not Resolved]
  - Wheezing [Unknown]
  - Confusional state [Unknown]
  - Abdominal pain upper [Unknown]
  - Dyskinesia [Unknown]
  - Chromaturia [Unknown]
  - Hepatomegaly [Unknown]
  - Peripheral swelling [Unknown]

NARRATIVE: CASE EVENT DATE: 201511
